FAERS Safety Report 23380828 (Version 2)
Quarter: 2024Q1

REPORT INFORMATION
  Report Type: Spontaneous
  Country: JP (occurrence: JP)
  Receive Date: 20240109
  Receipt Date: 20240312
  Transmission Date: 20240410
  Serious: Yes (Hospitalization)
  Sender: FDA-Public Use
  Company Number: JP-TEVA-VS-3136373

PATIENT
  Age: 50 Year
  Sex: Male

DRUGS (9)
  1. PREDNISOLONE [Suspect]
     Active Substance: PREDNISOLONE
     Indication: Immunosuppressant drug therapy
     Route: 065
  2. MYCOPHENOLATE MOFETIL [Suspect]
     Active Substance: MYCOPHENOLATE MOFETIL
     Indication: Immunosuppressant drug therapy
     Route: 065
  3. MYCOPHENOLATE MOFETIL [Suspect]
     Active Substance: MYCOPHENOLATE MOFETIL
     Indication: Immunosuppressant drug therapy
     Route: 065
  4. REMDESIVIR [Suspect]
     Active Substance: REMDESIVIR
     Indication: COVID-19 pneumonia
     Dosage: ADMINISTERED ON DAY 2-5.
     Route: 042
     Dates: start: 2022, end: 2022
  5. REMDESIVIR [Suspect]
     Active Substance: REMDESIVIR
     Indication: COVID-19 pneumonia
     Dosage: ADMINISTERED ON DAY 1.
     Route: 042
     Dates: start: 2022, end: 2022
  6. CYCLOSPORINE [Suspect]
     Active Substance: CYCLOSPORINE
     Indication: Immunosuppressant drug therapy
     Route: 065
  7. CYCLOSPORINE [Suspect]
     Active Substance: CYCLOSPORINE
     Indication: Immunosuppressant drug therapy
     Route: 065
  8. LIRAGLUTIDE [Concomitant]
     Active Substance: LIRAGLUTIDE
     Indication: Type 2 diabetes mellitus
     Route: 058
  9. DEXAMETHASONE [Suspect]
     Active Substance: DEXAMETHASONE
     Indication: COVID-19 pneumonia
     Dosage: ADMINISTERED ON DAY 1-10.
     Route: 042
     Dates: start: 2022, end: 2022

REACTIONS (8)
  - Acute kidney injury [Recovered/Resolved]
  - Drug ineffective [Unknown]
  - Respiratory failure [Recovered/Resolved]
  - Off label use [Unknown]
  - COVID-19 pneumonia [Recovered/Resolved]
  - Toxicity to various agents [Recovered/Resolved]
  - Drug ineffective for unapproved indication [Unknown]
  - Nephropathy [Recovered/Resolved]

NARRATIVE: CASE EVENT DATE: 20220101
